FAERS Safety Report 9457226 (Version 4)
Quarter: 2014Q2

REPORT INFORMATION
  Report Type: Spontaneous
  Country: US (occurrence: US)
  Receive Date: 20130814
  Receipt Date: 20140415
  Transmission Date: 20141212
  Serious: Yes (Hospitalization, Other)
  Sender: FDA-Public Use
  Company Number: US-BRISTOL-MYERS SQUIBB COMPANY-19174309

PATIENT
  Age: 70 Year
  Sex: Female

DRUGS (26)
  1. BYETTA [Suspect]
     Indication: TYPE 2 DIABETES MELLITUS
     Route: 048
     Dates: start: 20060113, end: 20111009
  2. DIGOXIN [Concomitant]
     Route: 048
  3. PAXIL [Concomitant]
     Route: 048
  4. AMBIEN [Concomitant]
     Dosage: AT BEDTIME.
     Route: 048
  5. ZANAFLEX [Concomitant]
     Route: 048
  6. ARMOUR THYROID [Concomitant]
     Route: 048
  7. PRILOSEC [Concomitant]
     Route: 048
  8. LANTUS [Concomitant]
     Dosage: 30 UNITS Q.A.M. 15 UNITS AT BEDTIME
  9. METHADONE [Concomitant]
     Route: 048
  10. GEMFIBROZIL [Concomitant]
     Route: 048
  11. MAGNESIUM OXIDE [Concomitant]
     Route: 048
  12. ATIVAN [Concomitant]
  13. VITAMIN B [Concomitant]
  14. VITAMIN C [Concomitant]
  15. FISH OIL [Concomitant]
  16. VITAMIN B12 [Concomitant]
  17. FOLIC ACID [Concomitant]
  18. OMEPRAZOLE [Concomitant]
     Route: 048
  19. LORAZEPAM [Concomitant]
     Indication: ANXIETY
  20. SENOKOT [Concomitant]
  21. GABAPENTIN [Concomitant]
  22. METOPROLOL [Concomitant]
  23. REGLAN [Concomitant]
  24. ZANAFLEX [Concomitant]
  25. PAXIL [Concomitant]
  26. OXYCODONE [Concomitant]

REACTIONS (1)
  - Adenocarcinoma pancreas [Unknown]
